FAERS Safety Report 6856336-8 (Version None)
Quarter: 2010Q2

REPORT INFORMATION
  Report Type: 
  Country: None (occurrence: None)
  Receive Date: 20100630
  Receipt Date: 20100325
  Transmission Date: 20101027
  Serious: No
  Sender: FDA-Public Use
  Company Number: 1000012797

PATIENT
  Age: 82 Year
  Sex: Female

DRUGS (2)
  1. BYSTOLIC [Suspect]
     Dosage: ORAL
     Route: 048
     Dates: start: 20081201
  2. MULTIPLE UNKNOWN MEDICATIONS [Concomitant]

REACTIONS (1)
  - SKIN EXFOLIATION [None]
